FAERS Safety Report 12346674 (Version 1)
Quarter: 2016Q2

REPORT INFORMATION
  Report Type: Spontaneous
  Country: US (occurrence: None)
  Receive Date: 20160506
  Receipt Date: 20160506
  Transmission Date: 20160815
  Serious: Yes (Hospitalization)
  Sender: FDA-Public Use
  Company Number: None

PATIENT
  Age: 43 Year
  Sex: Male

DRUGS (1)
  1. GILENYA [Suspect]
     Active Substance: FINGOLIMOD HYDROCHLORIDE
     Indication: MULTIPLE SCLEROSIS
     Route: 048
     Dates: start: 20160112, end: 20160412

REACTIONS (5)
  - Chills [None]
  - Constipation [None]
  - Rash [None]
  - Decreased appetite [None]
  - Pyrexia [None]

NARRATIVE: CASE EVENT DATE: 20160412
